FAERS Safety Report 9057174 (Version 2)
Quarter: 2013Q1

REPORT INFORMATION
  Report Type: Spontaneous
  Country: US (occurrence: US)
  Receive Date: 20130131
  Receipt Date: 20130320
  Transmission Date: 20140127
  Serious: Yes (Other)
  Sender: FDA-Public Use
  Company Number: US-PFIZER INC-2013040016

PATIENT
  Age: 56 Year
  Sex: Male
  Weight: 97 kg

DRUGS (4)
  1. LYRICA [Suspect]
     Indication: NEURALGIA
     Dosage: UNK
     Route: 048
     Dates: start: 2008
  2. LYRICA [Suspect]
     Indication: NEUROPATHY PERIPHERAL
  3. LOTREL [Concomitant]
     Indication: HYPERTENSION
     Dosage: UNK
  4. PRILOSEC [Concomitant]
     Dosage: UNK

REACTIONS (6)
  - Blood glucose increased [Unknown]
  - Glycosylated haemoglobin increased [Unknown]
  - Herpes zoster disseminated [Unknown]
  - Dehydration [Unknown]
  - Drug ineffective [Unknown]
  - Pain [Unknown]
